FAERS Safety Report 7883952-7 (Version None)
Quarter: 2011Q4

REPORT INFORMATION
  Report Type: 
  Country: None (occurrence: None)
  Receive Date: 20111102
  Receipt Date: 20111027
  Transmission Date: 20120403
  Serious: Yes (Other)
  Sender: FDA-Public Use
  Company Number: US-JNJFOC-20111012534

PATIENT

DRUGS (4)
  1. INVEGA [Suspect]
     Indication: SCHIZOAFFECTIVE DISORDER
     Route: 048
  2. INVEGA SUSTENNA [Suspect]
     Indication: SCHIZOAFFECTIVE DISORDER
     Route: 030
  3. INVEGA [Suspect]
     Route: 048
  4. INVEGA SUSTENNA [Suspect]
     Route: 030

REACTIONS (1)
  - TARDIVE DYSKINESIA [None]
